FAERS Safety Report 9981161 (Version 1)
Quarter: 2014Q1

REPORT INFORMATION
  Report Type: Spontaneous
  Country: JP (occurrence: None)
  Receive Date: 20140305
  Receipt Date: 20140305
  Transmission Date: 20141002
  Serious: Yes (Other)
  Sender: FDA-Public Use
  Company Number: 2014HINLIT0183

PATIENT
  Age: 17 Year
  Sex: Female

DRUGS (2)
  1. HYDROXYZINE [Suspect]
     Indication: ANAESTHETIC PREMEDICATION
     Route: 030
  2. BENZYL ALCOHOL (BENZYL ALCOHOL) INJECTION [Concomitant]

REACTIONS (2)
  - Skin necrosis [None]
  - Extravasation [None]
